FAERS Safety Report 6970537-X (Version None)
Quarter: 2010Q3

REPORT INFORMATION
  Report Type: 
  Country: None (occurrence: None)
  Receive Date: 20100908
  Receipt Date: 20100901
  Transmission Date: 20110219
  Serious: Yes (Hospitalization, Other)
  Sender: FDA-Public Use
  Company Number: BR-ROCHE-719540

PATIENT
  Sex: Female
  Weight: 75 kg

DRUGS (7)
  1. TOCILIZUMAB [Suspect]
     Indication: STILL'S DISEASE ADULT ONSET
     Dosage: FORM: INFUSION.
     Route: 042
     Dates: start: 20100501, end: 20100630
  2. PREDNISONE [Concomitant]
  3. ATENOLOL [Concomitant]
     Dosage: FREQUENCY: 2 TAB/DAY
  4. OMEPRAZOLE [Concomitant]
  5. MAREVAN [Concomitant]
  6. FERROUS SULFATE TAB [Concomitant]
  7. ADTIL [Concomitant]

REACTIONS (9)
  - ARRHYTHMIA [None]
  - C-REACTIVE PROTEIN INCREASED [None]
  - HEART RATE INCREASED [None]
  - HYPERTENSION [None]
  - IMMUNODEFICIENCY [None]
  - INFLUENZA [None]
  - PERICARDITIS [None]
  - PULMONARY EMBOLISM [None]
  - SINUS DISORDER [None]
